FAERS Safety Report 25304613 (Version 1)
Quarter: 2025Q2

REPORT INFORMATION
  Report Type: Spontaneous
  Country: US (occurrence: None)
  Receive Date: 20250512
  Receipt Date: 20250512
  Transmission Date: 20250716
  Serious: Yes (Disabling)
  Sender: FDA-CTU
  Company Number: None

PATIENT
  Age: 50 Year
  Sex: Female
  Weight: 95.85 kg

DRUGS (3)
  1. PANTOPRAZOLE [Suspect]
     Active Substance: PANTOPRAZOLE
     Indication: Gastrooesophageal reflux disease
  2. LEVOTHYROXINE [Concomitant]
     Active Substance: LEVOTHYROXINE
  3. MULTI-VITAMIN [Concomitant]
     Active Substance: .ALPHA.-TOCOPHEROL ACETATE, DL-\ASCORBIC ACID\CYANOCOBALAMIN\FLUORIDE ION\FOLIC ACID\NIACIN\PYRIDOXI

REACTIONS (10)
  - Panic attack [None]
  - Anxiety [None]
  - Diverticulitis [None]
  - Therapy cessation [None]
  - Incorrect product administration duration [None]
  - Drug monitoring procedure not performed [None]
  - Quality of life decreased [None]
  - Economic problem [None]
  - Personality change [None]
  - Partner stress [None]

NARRATIVE: CASE EVENT DATE: 20250426
